FAERS Safety Report 16234428 (Version 2)
Quarter: 2020Q2

REPORT INFORMATION
  Report Type: Spontaneous
  Country: US (occurrence: US)
  Receive Date: 20190424
  Receipt Date: 20200507
  Transmission Date: 20200713
  Serious: Yes (Other)
  Sender: FDA-Public Use
  Company Number: US-BRISTOL-MYERS SQUIBB COMPANY-BMS-2019-038719

PATIENT
  Sex: Male

DRUGS (1)
  1. ELIQUIS [Suspect]
     Active Substance: APIXABAN
     Indication: MYOCARDIAL INFARCTION
     Dosage: 5 MILLIGRAM, QD
     Route: 048
     Dates: start: 2016

REACTIONS (4)
  - Off label use [Unknown]
  - Prostatic haemorrhage [Unknown]
  - Intentional product use issue [Unknown]
  - Feeling of body temperature change [Unknown]
